FAERS Safety Report 18222006 (Version 1)
Quarter: 2020Q3

REPORT INFORMATION
  Report Type: Spontaneous
  Country: US (occurrence: US)
  Receive Date: 20200902
  Receipt Date: 20200902
  Transmission Date: 20201103
  Serious: Yes (Hospitalization, Other)
  Sender: FDA-Public Use
  Company Number: US-SHIRE-US202028150

PATIENT
  Age: 59 Year
  Sex: Male

DRUGS (2)
  1. FIRAZYR [Suspect]
     Active Substance: ICATIBANT ACETATE
     Indication: PRODUCT USED FOR UNKNOWN INDICATION
     Dosage: 30 MILLIGRAM/3 MILLILITER, AS REQ^D
     Route: 058
     Dates: start: 20170829
  2. FIRAZYR [Suspect]
     Active Substance: ICATIBANT ACETATE
     Indication: PRODUCT USED FOR UNKNOWN INDICATION
     Dosage: 30 MILLIGRAM/3 MILLILITER, AS REQ^D
     Route: 058
     Dates: start: 20170829

REACTIONS (2)
  - Pneumonia [Not Recovered/Not Resolved]
  - Neoplasm malignant [Not Recovered/Not Resolved]

NARRATIVE: CASE EVENT DATE: 20200821
